FAERS Safety Report 6581308-0 (Version None)
Quarter: 2010Q1

REPORT INFORMATION
  Report Type: 
  Country: None (occurrence: None)
  Receive Date: 20100215
  Receipt Date: 20090504
  Transmission Date: 20100710
  Serious: Yes (Disabling, Other)
  Sender: FDA-Public Use
  Company Number: US-JNJFOC-20090206802

PATIENT
  Sex: Male

DRUGS (1)
  1. LEVAQUIN [Suspect]
     Indication: INFECTION

REACTIONS (7)
  - ANXIETY [None]
  - BURSITIS [None]
  - DEPRESSION [None]
  - FOOT DEFORMITY [None]
  - MUSCLE DISORDER [None]
  - TENDON RUPTURE [None]
  - TENDONITIS [None]
